FAERS Safety Report 16406381 (Version 2)
Quarter: 2019Q4

REPORT INFORMATION
  Report Type: Spontaneous
  Country: NZ (occurrence: NZ)
  Receive Date: 20190607
  Receipt Date: 20191015
  Transmission Date: 20200122
  Serious: Yes (Other)
  Sender: FDA-Public Use
  Company Number: NZ-GLAXOSMITHKLINE-NZ2019GSK097422

PATIENT
  Age: 63 Year
  Sex: Female

DRUGS (2)
  1. BREO ELLIPTA [Suspect]
     Active Substance: FLUTICASONE FUROATE\VILANTEROL TRIFENATATE
     Indication: CHRONIC OBSTRUCTIVE PULMONARY DISEASE
     Dosage: UNK
     Dates: start: 2017
  2. ANORO ELLIPTA [Suspect]
     Active Substance: UMECLIDINIUM BROMIDE\VILANTEROL TRIFENATATE
     Indication: CHRONIC OBSTRUCTIVE PULMONARY DISEASE
     Dosage: UNK
     Dates: start: 2019

REACTIONS (8)
  - Dyspnoea [Unknown]
  - Therapeutic product effect incomplete [Unknown]
  - Skin atrophy [Unknown]
  - Skin fragility [Recovering/Resolving]
  - Contusion [Unknown]
  - Skin laceration [Recovered/Resolved]
  - Skin haemorrhage [Recovering/Resolving]
  - Cough [Not Recovered/Not Resolved]
